FAERS Safety Report 9299437 (Version 1)
Quarter: 2013Q2

REPORT INFORMATION
  Report Type: Other
  Country: FR (occurrence: FR)
  Receive Date: 20130521
  Receipt Date: 20130521
  Transmission Date: 20140414
  Serious: Yes (Hospitalization)
  Sender: FDA-Public Use
  Company Number: FR-BRISTOL-MYERS SQUIBB COMPANY-18695601

PATIENT
  Age: 53 Year
  Sex: Male

DRUGS (9)
  1. GLUCOPHAGE [Suspect]
  2. ACETYLSALICYLIC ACID [Suspect]
     Indication: GOUT
  3. VOLTARENE [Suspect]
     Indication: GOUT
  4. COLCHIMAX [Suspect]
     Indication: GOUT
  5. LASILIX [Suspect]
  6. ALDALIX [Suspect]
  7. OLMETEC [Suspect]
  8. LANTUS [Concomitant]
     Dosage: 1DF: 28 UNIT ON MORNING
  9. NOVORAPID [Concomitant]
     Dosage: 1DF:20IU

REACTIONS (6)
  - Myopathy [Unknown]
  - Rhabdomyolysis [Unknown]
  - Renal failure acute [Unknown]
  - Diarrhoea [Unknown]
  - Vomiting [Unknown]
  - Nausea [Unknown]
